APPROVED DRUG PRODUCT: RANITIDINE HYDROCHLORIDE
Active Ingredient: RANITIDINE HYDROCHLORIDE
Strength: EQ 75MG BASE
Dosage Form/Route: TABLET;ORAL
Application: A075519 | Product #001
Applicant: SANDOZ INC
Approved: Sep 26, 2002 | RLD: No | RS: No | Type: DISCN